FAERS Safety Report 4685703-6 (Version None)
Quarter: 2005Q2

REPORT INFORMATION
  Report Type: 
  Country: None (occurrence: None)
  Receive Date: 20050608
  Receipt Date: 20050520
  Transmission Date: 20051028
  Serious: Yes (Hospitalization)
  Sender: FDA-Public Use
  Company Number: DSA_26467_2005

PATIENT
  Age: 51 Year
  Sex: Female

DRUGS (1)
  1. TAVOR [Suspect]
     Dosage: 20 MG ONCE PO
     Route: 048
     Dates: start: 20050515, end: 20050515

REACTIONS (3)
  - INTENTIONAL MISUSE [None]
  - SOMNOLENCE [None]
  - VOMITING [None]
